FAERS Safety Report 8196282-3 (Version None)
Quarter: 2012Q1

REPORT INFORMATION
  Report Type: 
  Country: None (occurrence: None)
  Receive Date: 20120306
  Receipt Date: 20120223
  Transmission Date: 20120608
  Serious: Yes (Other)
  Sender: FDA-Public Use
  Company Number: 2012SP010410

PATIENT

DRUGS (1)
  1. NOXAFIL [Suspect]
     Dosage: PO
     Route: 048

REACTIONS (1)
  - SUPRAVENTRICULAR TACHYCARDIA [None]
